FAERS Safety Report 21937121 (Version 1)
Quarter: 2023Q1

REPORT INFORMATION
  Report Type: Report from Study
  Country: JP (occurrence: JP)
  Receive Date: 20230201
  Receipt Date: 20230201
  Transmission Date: 20230417
  Serious: No
  Sender: FDA-Public Use
  Company Number: JP-EPIZYME, INC-2021JPEPIZYME0501

PATIENT

DRUGS (6)
  1. TAZVERIK [Suspect]
     Active Substance: TAZEMETOSTAT HYDROBROMIDE
     Indication: Follicular lymphoma
     Dosage: 1200 MG, QD
     Route: 048
     Dates: start: 20210902, end: 20211013
  2. TAZVERIK [Suspect]
     Active Substance: TAZEMETOSTAT HYDROBROMIDE
     Dosage: 1200 MG, QD
     Route: 048
     Dates: start: 20211104, end: 20211229
  3. TAZVERIK [Suspect]
     Active Substance: TAZEMETOSTAT HYDROBROMIDE
     Dosage: 1200 MG, QD
     Route: 048
     Dates: start: 20220203, end: 20220427
  4. TAZVERIK [Suspect]
     Active Substance: TAZEMETOSTAT HYDROBROMIDE
     Dosage: 1200 MG, QD
     Route: 048
     Dates: start: 20220609, end: 20220803
  5. TAZVERIK [Suspect]
     Active Substance: TAZEMETOSTAT HYDROBROMIDE
     Dosage: 1200 MG, QD
     Route: 048
     Dates: start: 20220901
  6. SULFAMETHOXAZOLE\TRIMETHOPRIM [Concomitant]
     Active Substance: SULFAMETHOXAZOLE\TRIMETHOPRIM
     Indication: Infection prophylaxis
     Dosage: UNK
     Dates: start: 20210902

REACTIONS (4)
  - Taste disorder [Recovering/Resolving]
  - Taste disorder [Recovering/Resolving]
  - Taste disorder [Recovering/Resolving]
  - Taste disorder [Recovering/Resolving]

NARRATIVE: CASE EVENT DATE: 20211014
